FAERS Safety Report 14784153 (Version 2)
Quarter: 2018Q3

REPORT INFORMATION
  Report Type: Spontaneous
  Country: NL (occurrence: NL)
  Receive Date: 20180420
  Receipt Date: 20180808
  Transmission Date: 20181010
  Serious: Yes (Other)
  Sender: FDA-Public Use
  Company Number: NL-SA-2018SA102215

PATIENT
  Age: 81 Year
  Sex: Male

DRUGS (21)
  1. DALTEPARIN [Concomitant]
     Active Substance: DALTEPARIN
     Dosage: UNK UNK,UNK
     Route: 065
  2. ONDANSETRON [Concomitant]
     Active Substance: ONDANSETRON
     Dosage: UNK UNK,UNK
     Route: 065
  3. PHYTOMENADIONE [Concomitant]
     Active Substance: PHYTONADIONE
     Dosage: UNK UNK,UNK
     Route: 065
  4. OXYCODONE [Concomitant]
     Active Substance: OXYCODONE
     Dosage: UNK UNK,UNK
     Route: 065
  5. PARACETAMOL [Concomitant]
     Active Substance: ACETAMINOPHEN
     Dosage: UNK UNK,UNK
     Route: 065
  6. FINASTERIDE. [Concomitant]
     Active Substance: FINASTERIDE
     Dosage: UNK UNK,UNK
     Route: 065
  7. FUROSEMIDE. [Concomitant]
     Active Substance: FUROSEMIDE
     Dosage: UNK UNK,UNK
     Route: 065
  8. MORPHINE [Concomitant]
     Active Substance: MORPHINE
     Dosage: UNK UNK,UNK
     Route: 065
  9. PHENPROCOUMON [Concomitant]
     Active Substance: PHENPROCOUMON
     Dosage: UNK UNK,UNK
     Route: 065
  10. PRIMPERAN [Concomitant]
     Active Substance: METOCLOPRAMIDE HYDROCHLORIDE
     Dosage: UNK UNK,UNK
     Route: 065
  11. CEFTRIAXONE. [Concomitant]
     Active Substance: CEFTRIAXONE
     Dosage: UNK UNK,UNK
     Route: 065
  12. PREDNISOLONE. [Concomitant]
     Active Substance: PREDNISOLONE
     Dosage: UNK UNK,UNK
     Route: 065
  13. RIFAMPICIN [Suspect]
     Active Substance: RIFAMPIN
     Indication: WOUND INFECTION
     Dosage: UNK UNK,UNK
     Route: 042
  14. IPRATROPIUM [Concomitant]
     Active Substance: IPRATROPIUM
     Dosage: UNK UNK,UNK
     Route: 065
  15. OXYCONTIN [Concomitant]
     Active Substance: OXYCODONE HYDROCHLORIDE
     Dosage: UNK UNK,UNK
     Route: 065
  16. TEMAZEPAM. [Concomitant]
     Active Substance: TEMAZEPAM
     Dosage: UNK UNK,UNK
     Route: 065
  17. DROPERIDOL. [Concomitant]
     Active Substance: DROPERIDOL
     Dosage: UNK UNK,UNK
     Route: 065
  18. DEXAMETHASONE. [Concomitant]
     Active Substance: DEXAMETHASONE
     Dosage: UNK UNK,UNK
     Route: 065
  19. VANCOMYCIN [Suspect]
     Active Substance: VANCOMYCIN
     Indication: WOUND INFECTION
     Dosage: UNK UNK,UNK
     Route: 042
  20. METRONIDAZOLE. [Concomitant]
     Active Substance: METRONIDAZOLE
     Dosage: UNK UNK,UNK
     Route: 065
  21. NYSTATIN. [Concomitant]
     Active Substance: NYSTATIN
     Dosage: UNK UNK,UNK
     Route: 065

REACTIONS (5)
  - Skin lesion [Recovered/Resolved]
  - Linear IgA disease [Recovered/Resolved]
  - Oedema genital [Recovered/Resolved]
  - Skin plaque [Recovered/Resolved]
  - Blister [Recovered/Resolved]
